FAERS Safety Report 9249347 (Version 1)
Quarter: 2013Q2

REPORT INFORMATION
  Report Type: Spontaneous
  Country: US (occurrence: US)
  Receive Date: 20130423
  Receipt Date: 20130423
  Transmission Date: 20140414
  Serious: Yes (Hospitalization)
  Sender: FDA-Public Use
  Company Number: US-GLAXOSMITHKLINE-A0695000A

PATIENT
  Age: 43 Year
  Sex: Female
  Weight: 124.5 kg

DRUGS (4)
  1. AVANDIA [Suspect]
     Indication: TYPE 2 DIABETES MELLITUS
     Dosage: 4MG PER DAY
     Route: 048
     Dates: start: 2000, end: 2007
  2. GLUCOPHAGE [Concomitant]
  3. METFORMIN [Concomitant]
  4. HUMALOG [Concomitant]

REACTIONS (4)
  - Cardiac failure congestive [Not Recovered/Not Resolved]
  - Swelling [Unknown]
  - Mobility decreased [Unknown]
  - Dyspnoea [Unknown]
